FAERS Safety Report 12110655 (Version 1)
Quarter: 2016Q1

REPORT INFORMATION
  Report Type: Spontaneous
  Country: US (occurrence: US)
  Receive Date: 20160224
  Receipt Date: 20160224
  Transmission Date: 20160526
  Serious: Yes (Hospitalization)
  Sender: FDA-Public Use
  Company Number: US-JAZZ-2015-US-000533

PATIENT
  Age: 54 Year
  Sex: Male

DRUGS (10)
  1. CLONIDINE. [Suspect]
     Active Substance: CLONIDINE
     Indication: SPINAL PAIN
  2. LISINOPRIL. [Concomitant]
     Active Substance: LISINOPRIL
  3. PRIALT [Suspect]
     Active Substance: ZICONOTIDE ACETATE
     Indication: PAIN
     Dosage: 0.0183 ?G, QH
     Route: 037
     Dates: start: 20141217, end: 20140108
  4. PRIALT [Suspect]
     Active Substance: ZICONOTIDE ACETATE
     Indication: SPINAL PAIN
     Dosage: 0.0383 ?G, QH
     Route: 037
     Dates: start: 201501, end: 201501
  5. SERTRALINE HCL [Concomitant]
     Active Substance: SERTRALINE HYDROCHLORIDE
  6. LORAZEPAM. [Concomitant]
     Active Substance: LORAZEPAM
  7. MORPHINE SULFATE. [Suspect]
     Active Substance: MORPHINE SULFATE
     Indication: SPINAL PAIN
  8. MORPHINE SULFATE. [Suspect]
     Active Substance: MORPHINE SULFATE
     Indication: PAIN
     Dosage: 0.173 MG, QH
     Route: 037
     Dates: end: 20150108
  9. CLONIDINE. [Suspect]
     Active Substance: CLONIDINE
     Indication: PAIN
  10. PRIALT [Suspect]
     Active Substance: ZICONOTIDE ACETATE
     Dosage: 0.04125 ?G, QH
     Route: 037
     Dates: start: 20140108, end: 20150114

REACTIONS (4)
  - Psychotic disorder [Unknown]
  - Road traffic accident [Unknown]
  - Agitation [Unknown]
  - Nervousness [Unknown]

NARRATIVE: CASE EVENT DATE: 20150112
